FAERS Safety Report 24269155 (Version 1)
Quarter: 2024Q3

REPORT INFORMATION
  Report Type: Spontaneous
  Country: AU (occurrence: AU)
  Receive Date: 20240830
  Receipt Date: 20240830
  Transmission Date: 20241016
  Serious: Yes (Other)
  Sender: AMGEN
  Company Number: AU-AMGEN-AUSSP2024172323

PATIENT
  Age: 48 Year
  Sex: Female

DRUGS (6)
  1. BEVACIZUMAB [Suspect]
     Active Substance: BEVACIZUMAB
     Indication: Upper gastrointestinal haemorrhage
     Dosage: 5 MILLIGRAM/KILOGRAM (275 MG)
     Route: 042
  2. BEVACIZUMAB [Suspect]
     Active Substance: BEVACIZUMAB
     Indication: Off label use
  3. RITUXIMAB [Concomitant]
     Active Substance: RITUXIMAB
     Indication: Diffuse large B-cell lymphoma recurrent
  4. DEXAMETHASONE [Concomitant]
     Active Substance: DEXAMETHASONE
     Indication: Diffuse large B-cell lymphoma recurrent
  5. CYTARABINE [Concomitant]
     Active Substance: CYTARABINE
     Indication: Diffuse large B-cell lymphoma recurrent
  6. CARBOPLATIN [Concomitant]
     Active Substance: CARBOPLATIN
     Indication: Diffuse large B-cell lymphoma recurrent

REACTIONS (3)
  - Gastric perforation [Unknown]
  - Drug effective for unapproved indication [Unknown]
  - Off label use [Unknown]
